FAERS Safety Report 8215459-1 (Version None)
Quarter: 2012Q1

REPORT INFORMATION
  Report Type: 
  Country: None (occurrence: None)
  Receive Date: 20120316
  Receipt Date: 20120302
  Transmission Date: 20120608
  Serious: Yes (Death, Hospitalization)
  Sender: FDA-Public Use
  Company Number: JP-ROCHE-1021722

PATIENT
  Sex: Female

DRUGS (5)
  1. PREDNISOLONE [Concomitant]
     Indication: RHEUMATOID ARTHRITIS
     Dosage: DOSAGE IS UNCERTAIN.
     Route: 048
     Dates: start: 20050917
  2. ACTEMRA [Suspect]
     Indication: RHEUMATOID ARTHRITIS
     Dosage: DOSAGE IS UNCERTAIN.
     Route: 041
     Dates: start: 20110720, end: 20111018
  3. FLOMOX [Suspect]
     Indication: PRODUCT USED FOR UNKNOWN INDICATION
     Dosage: DOSAGE IS UNCERTAIN.
     Route: 048
  4. CELECOXIB [Concomitant]
     Indication: RHEUMATOID ARTHRITIS
     Route: 048
     Dates: start: 20100710
  5. AZUCURENIN S [Concomitant]
     Route: 048
     Dates: start: 20050917

REACTIONS (3)
  - HISTIOCYTOSIS HAEMATOPHAGIC [None]
  - HEPATITIS FULMINANT [None]
  - FELTY'S SYNDROME [None]
